FAERS Safety Report 8886610 (Version 1)
Quarter: 2012Q4

REPORT INFORMATION
  Report Type: 
  Country: US (occurrence: US)
  Receive Date: 20121105
  Receipt Date: 20121105
  Transmission Date: 20130627
  Serious: No
  Sender: FDA-Public Use
  Company Number: US-PFIZER INC-2012274718

PATIENT
  Sex: Female

DRUGS (2)
  1. GABAPENTIN [Suspect]
     Dosage: 300 mg, 3x/day
  2. GABAPENTIN [Suspect]
     Dosage: 300 mg, 1x/day
     Dates: start: 20121025, end: 20121028

REACTIONS (3)
  - Limb discomfort [Unknown]
  - Dizziness [Unknown]
  - Feeling abnormal [Unknown]
